FAERS Safety Report 5269420-X (Version None)
Quarter: 2007Q1

REPORT INFORMATION
  Report Type: 
  Country: None (occurrence: None)
  Receive Date: 20070320
  Receipt Date: 20070308
  Transmission Date: 20070707
  Serious: Yes (Other)
  Sender: FDA-Public Use
  Company Number: US-JNJFOC-20070302172

PATIENT
  Sex: Male
  Weight: 68.04 kg

DRUGS (4)
  1. REMICADE [Suspect]
     Indication: ANKYLOSING SPONDYLITIS
     Route: 042
  2. LANTUS [Concomitant]
     Dosage: 26 U DAILY
  3. DURAGESIC-100 [Concomitant]
  4. LISINOPRIL [Concomitant]

REACTIONS (1)
  - MEDICAL DEVICE COMPLICATION [None]
